FAERS Safety Report 8397056 (Version 3)
Quarter: 2013Q3

REPORT INFORMATION
  Report Type: Spontaneous
  Country: US (occurrence: US)
  Receive Date: 20120209
  Receipt Date: 20130726
  Transmission Date: 20140515
  Serious: Yes (Hospitalization)
  Sender: FDA-Public Use
  Company Number: US-B.I. PHARMACEUTICALS,INC./RIDGEFIELD-2012-BP-02355BP

PATIENT
  Age: 87 Year
  Sex: Female
  Weight: 70.31 kg

DRUGS (14)
  1. PRADAXA [Suspect]
     Indication: ATRIAL FIBRILLATION
     Dosage: 300 MG
     Route: 048
     Dates: start: 20110418, end: 20111111
  2. PRADAXA [Suspect]
     Indication: ANTICOAGULANT THERAPY
  3. GLUCOSAMINE [Concomitant]
     Dosage: 1500 MG
  4. DIGOXIN [Concomitant]
     Dosage: 125 MCG
  5. LIPITOR [Concomitant]
     Dosage: 40 MG
  6. LIQUID TEARS [Concomitant]
  7. GLIMEPIRIDE [Concomitant]
     Dosage: 4 MG
  8. HYDROCHLOROTHIAZIDE [Concomitant]
     Dosage: 50 MG
  9. LISINOPRIL [Concomitant]
     Dosage: 20 MG
  10. METFORMIN [Concomitant]
     Dosage: 2000 MG
  11. METOPROLOL SUCCINATE [Concomitant]
     Dosage: 25 MG
  12. POTASSIUM CHLORIDE [Concomitant]
  13. PROPOXYPHENE/ACETAMINOPHEN [Concomitant]
  14. VERAPAMIL [Concomitant]
     Dosage: 160 MG

REACTIONS (8)
  - Haemoglobin decreased [Recovered/Resolved]
  - Melaena [Recovered/Resolved]
  - Gastrointestinal haemorrhage [Unknown]
  - Anaemia [Unknown]
  - Duodenitis [Unknown]
  - Ulcer haemorrhage [Unknown]
  - Coagulopathy [Unknown]
  - Asthenia [Not Recovered/Not Resolved]
